FAERS Safety Report 10179563 (Version 1)
Quarter: 2014Q2

REPORT INFORMATION
  Report Type: Spontaneous
  Country: GB (occurrence: GB)
  Receive Date: 20140519
  Receipt Date: 20140519
  Transmission Date: 20141212
  Serious: Yes (Life-Threatening, Other)
  Sender: FDA-Public Use
  Company Number: GB-WATSON-2014-09844

PATIENT
  Age: 35 Year
  Sex: Male

DRUGS (2)
  1. FENTANYL (UNKNOWN) [Suspect]
     Indication: INDUCTION OF ANAESTHESIA
     Dosage: UNK
     Route: 065
     Dates: start: 20140327
  2. PROPOFOL NORAMEDA [Suspect]
     Indication: INDUCTION OF ANAESTHESIA
     Dosage: UNK, 1%
     Route: 065
     Dates: start: 20140327

REACTIONS (2)
  - Cardiac arrest [Recovered/Resolved]
  - Bradycardia [Recovered/Resolved]
